FAERS Safety Report 12899698 (Version 1)
Quarter: 2016Q4

REPORT INFORMATION
  Report Type: Spontaneous
  Country: TR (occurrence: TR)
  Receive Date: 20161101
  Receipt Date: 20161101
  Transmission Date: 20170207
  Serious: Yes (Other)
  Sender: FDA-Public Use
  Company Number: TR-GLAXOSMITHKLINE-TR2016GSK155569

PATIENT
  Age: 16 Year
  Sex: Female

DRUGS (3)
  1. CLARITHROMYCIN. [Interacting]
     Active Substance: CLARITHROMYCIN
     Indication: ANTIBIOTIC THERAPY
     Dosage: 500 MG, QD
  2. SALMETEROL [Concomitant]
     Active Substance: SALMETEROL
     Indication: ASTHMA
  3. FLUTICASONE PROPIONATE+SALMETEROL XINAFOATE [Suspect]
     Active Substance: FLUTICASONE PROPIONATE\SALMETEROL XINAFOATE
     Indication: ASTHMA
     Dosage: 500 MG, QD
     Route: 055

REACTIONS (16)
  - Hallucination [Recovered/Resolved]
  - Crying [Recovered/Resolved]
  - Insomnia [Recovered/Resolved]
  - Pressure of speech [Recovered/Resolved]
  - Psychomotor hyperactivity [Recovered/Resolved]
  - Suspiciousness [Recovered/Resolved]
  - Drug interaction [Unknown]
  - Disturbance in attention [Recovered/Resolved]
  - Persecutory delusion [Recovered/Resolved]
  - Agitation [Recovered/Resolved]
  - Speech disorder [Recovered/Resolved]
  - Irritability [Recovered/Resolved]
  - Ideas of reference [Recovered/Resolved]
  - Mania [Recovered/Resolved]
  - Suicide attempt [Recovered/Resolved]
  - Hallucination, auditory [Recovered/Resolved]
